FAERS Safety Report 13066045 (Version 1)
Quarter: 2016Q4

REPORT INFORMATION
  Report Type: Spontaneous
  Country: KR (occurrence: KR)
  Receive Date: 20161227
  Receipt Date: 20161227
  Transmission Date: 20170207
  Serious: Yes (Hospitalization, Other)
  Sender: FDA-Public Use
  Company Number: KR-009507513-1612KOR013210

PATIENT
  Age: 60 Year
  Sex: Male
  Weight: 73.6 kg

DRUGS (7)
  1. PADEXOL [Concomitant]
     Indication: LUNG NEOPLASM MALIGNANT
     Dosage: STRENGTH: 0.3 G/50 ML, 250 MG, QD
     Route: 042
  2. DEXAMETHASONE SODIUM PHOSPHATE. [Concomitant]
     Active Substance: DEXAMETHASONE SODIUM PHOSPHATE
     Indication: PROPHYLAXIS OF NAUSEA AND VOMITING
     Dosage: STRENGTH: 5 MG/ML
     Route: 042
  3. CURAN [Concomitant]
     Active Substance: RANITIDINE HYDROCHLORIDE
     Indication: DYSPEPSIA
     Dosage: STRENGTH: 50 MG/2 ML
     Route: 042
  4. PENIRAMIN [Concomitant]
     Indication: ANTIALLERGIC THERAPY
     Dosage: 4 MG, UNK
     Route: 042
  5. KYTRIL [Concomitant]
     Active Substance: GRANISETRON HYDROCHLORIDE
     Indication: PROPHYLAXIS OF NAUSEA AND VOMITING
     Dosage: 3 MG, UNK
     Route: 042
  6. NEOPLATIN [Concomitant]
     Active Substance: CISPLATIN
     Indication: LUNG NEOPLASM MALIGNANT
     Dosage: STRENGTH: 450 MG/45 ML, 450 MG, QD
     Route: 042
  7. EMEND (FOSAPREPITANT DIMEGLUMINE) [Suspect]
     Active Substance: FOSAPREPITANT DIMEGLUMINE
     Indication: PROPHYLAXIS OF NAUSEA AND VOMITING
     Dosage: 150 MG, ONCE
     Route: 042
     Dates: start: 20161020, end: 20161020

REACTIONS (2)
  - Anal abscess [Recovered/Resolved]
  - Gastric ulcer [Recovering/Resolving]

NARRATIVE: CASE EVENT DATE: 20161029
